FAERS Safety Report 19019059 (Version 1)
Quarter: 2021Q1

REPORT INFORMATION
  Report Type: Spontaneous
  Country: US (occurrence: US)
  Receive Date: 20210317
  Receipt Date: 20210317
  Transmission Date: 20210420
  Serious: No
  Sender: FDA-Public Use
  Company Number: US-SA-2021SA090118

PATIENT
  Age: 61 Year
  Sex: Female

DRUGS (1)
  1. THYROGEN [Suspect]
     Active Substance: THYROTROPIN ALFA
     Indication: THYROID CANCER RECURRENT
     Dosage: 0.9 MG, QD
     Dates: start: 20210301, end: 20210301

REACTIONS (1)
  - Product dose omission issue [Unknown]
